FAERS Safety Report 9219669 (Version 1)
Quarter: 2013Q1

REPORT INFORMATION
  Report Type: Spontaneous
  Country: US (occurrence: None)
  Receive Date: 20120830
  Receipt Date: 20120830
  Transmission Date: 20140127
  Serious: Yes (Other)
  Sender: FDA-Public Use
  Company Number: PHEH2012US009555

PATIENT
  Age: 53 Year
  Sex: Male

DRUGS (8)
  1. EXFORGE [Suspect]
     Dosage: 160 MG VALS AND 5 MG AMLO
  2. ASPIRIN (ACETYLSALICYLIC ACID) [Concomitant]
  3. CARVEDILOL (CARVEDILOL) [Concomitant]
  4. PLAVIX (CLOPIDOGREL SULFATE) [Concomitant]
  5. PEPCID (FAMOTIDINE) [Concomitant]
  6. IMDUR (ISOSORBIDE MONONITRATE) [Concomitant]
  7. CRESTOR (ROSUVASTIN CALCIUM) [Concomitant]
  8. MULTI-VIT (VITAMINS NOS) [Concomitant]

REACTIONS (2)
  - Myocardial infarction [None]
  - Blood pressure inadequately controlled [None]
